FAERS Safety Report 5285112-5 (Version None)
Quarter: 2007Q2

REPORT INFORMATION
  Report Type: 
  Country: None (occurrence: None)
  Receive Date: 20070403
  Receipt Date: 20070321
  Transmission Date: 20071010
  Serious: Yes (Hospitalization, Other)
  Sender: FDA-Public Use
  Company Number: PHHO2007GB05231

PATIENT
  Age: 13 Year
  Sex: Male
  Weight: 50.3 kg

DRUGS (6)
  1. IMATINIB MESYLATE [Suspect]
     Indication: ACUTE LYMPHOCYTIC LEUKAEMIA
     Dosage: NO TREATMENT
  2. IMATINIB MESYLATE [Suspect]
     Dosage: 400 MG, QD
     Route: 048
  3. IMATINIB MESYLATE [Suspect]
     Dosage: 400 MG, QD
     Route: 048
  4. METHOTREXATE [Concomitant]
     Indication: ACUTE LYMPHOCYTIC LEUKAEMIA
  5. 6-MP [Concomitant]
     Indication: ACUTE LYMPHOCYTIC LEUKAEMIA
  6. VINCRISTINE [Concomitant]
     Indication: ACUTE LYMPHOCYTIC LEUKAEMIA

REACTIONS (6)
  - EPSTEIN-BARR VIRUS INFECTION [None]
  - HYPOKALAEMIA [None]
  - INFECTION [None]
  - LYMPHOPROLIFERATIVE DISORDER [None]
  - NECROSIS [None]
  - PYREXIA [None]
